FAERS Safety Report 5842347-8 (Version None)
Quarter: 2008Q3

REPORT INFORMATION
  Report Type: 
  Country: None (occurrence: None)
  Receive Date: 20080812
  Receipt Date: 20080730
  Transmission Date: 20090109
  Serious: Yes (Hospitalization)
  Sender: FDA-Public Use
  Company Number: US-ELI_LILLY_AND_COMPANY-US200805000585

PATIENT
  Sex: Female
  Weight: 87.075 kg

DRUGS (8)
  1. FORTEO [Suspect]
     Indication: OSTEOPOROSIS
     Dosage: UNK, UNK
     Dates: start: 20060601, end: 20080423
  2. COUMADIN [Concomitant]
  3. LOPRESSOR [Concomitant]
     Dosage: 12.5 MG, 2/D
  4. XANAX [Concomitant]
     Dosage: 0.25 MG, UNK
  5. LEVOTHYROXINE SODIUM [Concomitant]
     Dosage: 0.125 MG, UNK
  6. CRESTOR [Concomitant]
     Dosage: 20 MG, UNK
  7. PAXIL [Concomitant]
     Dosage: 10 MG, UNK
  8. ACIPHEX [Concomitant]
     Dosage: 20 MG, UNK

REACTIONS (6)
  - ANAEMIA [None]
  - FALL [None]
  - HAEMORRHAGE [None]
  - HUMERUS FRACTURE [None]
  - HYPOCOAGULABLE STATE [None]
  - PUBIC RAMI FRACTURE [None]
